FAERS Safety Report 14878380 (Version 2)
Quarter: 2018Q2

REPORT INFORMATION
  Report Type: Spontaneous
  Country: BR (occurrence: BR)
  Receive Date: 20180511
  Receipt Date: 20180603
  Transmission Date: 20180711
  Serious: Yes (Hospitalization, Other)
  Sender: FDA-Public Use
  Company Number: BR-AMGEN-BRASP2018063110

PATIENT
  Age: 12 Year
  Sex: Male

DRUGS (2)
  1. ENBREL [Suspect]
     Active Substance: ETANERCEPT
     Indication: PSORIASIS
     Dosage: 50 MG, UNK
     Route: 065
     Dates: start: 20170922
  2. KETOPROFEN. [Concomitant]
     Active Substance: KETOPROFEN
     Dosage: 20 MG 30 DROPS EVERY 8 TO 8 HOURS.

REACTIONS (9)
  - Arthritis [Not Recovered/Not Resolved]
  - Condition aggravated [Unknown]
  - Pain [Unknown]
  - Osteoarthritis [Not Recovered/Not Resolved]
  - Mobility decreased [Unknown]
  - Psoriatic arthropathy [Unknown]
  - Swelling [Unknown]
  - Synovitis [Unknown]
  - Arthritis bacterial [Unknown]

NARRATIVE: CASE EVENT DATE: 201802
